FAERS Safety Report 14329602 (Version 5)
Quarter: 2018Q2

REPORT INFORMATION
  Report Type: Spontaneous
  Country: FR (occurrence: FR)
  Receive Date: 20171227
  Receipt Date: 20180531
  Transmission Date: 20180711
  Serious: Yes (Death, Other)
  Sender: FDA-Public Use
  Company Number: FR-BAUSCH-BL-2017-035272

PATIENT
  Age: 26 Year
  Sex: Female
  Weight: 60 kg

DRUGS (12)
  1. LAMOTRIGINE. [Suspect]
     Active Substance: LAMOTRIGINE
     Indication: COMPLETED SUICIDE
  2. CYAMEMAZINE [Suspect]
     Active Substance: CYAMEMAZINE
     Indication: COMPLETED SUICIDE
  3. PROPRANOLOL [Suspect]
     Active Substance: PROPRANOLOL HYDROCHLORIDE
     Indication: SUICIDE ATTEMPT
     Route: 065
  4. LOXAPINE. [Suspect]
     Active Substance: LOXAPINE
     Indication: COMPLETED SUICIDE
  5. MIANSERIN [Suspect]
     Active Substance: MIANSERIN
     Indication: SUICIDE ATTEMPT
     Route: 065
  6. PROPRANOLOL [Suspect]
     Active Substance: PROPRANOLOL HYDROCHLORIDE
     Indication: COMPLETED SUICIDE
  7. MIANSERIN [Suspect]
     Active Substance: MIANSERIN
     Indication: COMPLETED SUICIDE
  8. CYAMEMAZINE [Suspect]
     Active Substance: CYAMEMAZINE
     Indication: SUICIDE ATTEMPT
     Route: 065
  9. VENLAFAXINE [Suspect]
     Active Substance: VENLAFAXINE HYDROCHLORIDE
     Indication: COMPLETED SUICIDE
  10. LAMOTRIGINE. [Suspect]
     Active Substance: LAMOTRIGINE
     Indication: SUICIDE ATTEMPT
     Route: 065
  11. VENLAFAXINE [Suspect]
     Active Substance: VENLAFAXINE HYDROCHLORIDE
     Indication: SUICIDE ATTEMPT
     Route: 065
  12. LOXAPINE. [Suspect]
     Active Substance: LOXAPINE
     Indication: SUICIDE ATTEMPT
     Route: 065

REACTIONS (5)
  - Brain death [Fatal]
  - Overdose [Fatal]
  - Cardiac arrest [Fatal]
  - Toxicity to various agents [Fatal]
  - Completed suicide [Fatal]
